FAERS Safety Report 13455264 (Version 1)
Quarter: 2017Q2

REPORT INFORMATION
  Report Type: Spontaneous
  Country: US (occurrence: US)
  Receive Date: 20170419
  Receipt Date: 20170419
  Transmission Date: 20170830
  Serious: No
  Sender: FDA-Public Use
  Company Number: US-PFIZER INC-2017162428

PATIENT
  Sex: Male

DRUGS (1)
  1. XELJANZ XR [Suspect]
     Active Substance: TOFACITINIB CITRATE
     Dosage: 11 MG, DAILY

REACTIONS (13)
  - Low density lipoprotein increased [Unknown]
  - Pain in jaw [Unknown]
  - Arthralgia [Unknown]
  - Musculoskeletal stiffness [Unknown]
  - Skin mass [Unknown]
  - Depression [Not Recovered/Not Resolved]
  - Malaise [Unknown]
  - Arthritis [Not Recovered/Not Resolved]
  - Alanine aminotransferase decreased [Unknown]
  - Fatigue [Unknown]
  - Bone pain [Unknown]
  - Pain in extremity [Unknown]
  - Back pain [Unknown]
